FAERS Safety Report 11704754 (Version 1)
Quarter: 2015Q4

REPORT INFORMATION
  Report Type: Spontaneous
  Country: SG (occurrence: SG)
  Receive Date: 20151106
  Receipt Date: 20151106
  Transmission Date: 20160304
  Serious: Yes (Other)
  Sender: FDA-Public Use
  Company Number: SG-GLAXOSMITHKLINE-SG2015GSK156546

PATIENT
  Age: 49 Year
  Sex: Female

DRUGS (1)
  1. ZINNAT [Suspect]
     Active Substance: CEFUROXIME AXETIL
     Indication: PRODUCT USED FOR UNKNOWN INDICATION
     Dosage: UNK

REACTIONS (2)
  - Nausea [Recovered/Resolved]
  - Tremor [Recovered/Resolved]

NARRATIVE: CASE EVENT DATE: 20070101
